FAERS Safety Report 18267309 (Version 4)
Quarter: 2020Q4

REPORT INFORMATION
  Report Type: Report from Study
  Country: GB (occurrence: GB)
  Receive Date: 20200915
  Receipt Date: 20201222
  Transmission Date: 20210113
  Serious: Yes (Hospitalization)
  Sender: FDA-Public Use
  Company Number: GB-PFIZER INC-2020352112

PATIENT
  Weight: 33 kg

DRUGS (8)
  1. TAZOCIN [Concomitant]
     Active Substance: PIPERACILLIN SODIUM\TAZOBACTAM SODIUM
     Indication: FEBRILE NEUTROPENIA
     Dosage: 2.9 G, 1X/DAY
     Route: 042
     Dates: start: 20180820
  2. METHOTREXATE. [Concomitant]
     Active Substance: METHOTREXATE
     Dosage: 12.5 MG, 1X/DAY
     Route: 037
     Dates: start: 20180814, end: 20180830
  3. COTRIMOXAZOLE [Concomitant]
     Active Substance: SULFAMETHOXAZOLE\TRIMETHOPRIM
     Indication: PROPHYLAXIS
     Dosage: 480 MG, 2X/DAY
     Dates: start: 20180818, end: 20180930
  4. CYTARABINE. [Suspect]
     Active Substance: CYTARABINE
     Dosage: 2250 MG, 1X/DAY
     Route: 042
     Dates: start: 20180811
  5. HYDROCORTISONE. [Concomitant]
     Active Substance: HYDROCORTISONE
     Dosage: 12.5 MG, 1X/DAY
     Route: 037
     Dates: start: 20180814, end: 20180830
  6. IDARUBICIN HCL [Suspect]
     Active Substance: IDARUBICIN HYDROCHLORIDE
     Dosage: 9 MG, 1X/DAY
     Route: 042
     Dates: start: 20180813
  7. FLUDARABINE PHOSPHATE. [Suspect]
     Active Substance: FLUDARABINE PHOSPHATE
     Dosage: 32.5 MG, 1X/DAY
     Route: 042
     Dates: start: 20180811
  8. CYTARABINE. [Concomitant]
     Active Substance: CYTARABINE
     Dosage: 30 MG, 1X/DAY
     Route: 037
     Dates: start: 20180811, end: 20180830

REACTIONS (1)
  - Colitis [Recovered/Resolved]

NARRATIVE: CASE EVENT DATE: 20180825
